FAERS Safety Report 16094227 (Version 1)
Quarter: 2019Q1

REPORT INFORMATION
  Report Type: Spontaneous
  Country: US (occurrence: US)
  Receive Date: 20190320
  Receipt Date: 20190320
  Transmission Date: 20190418
  Serious: No
  Sender: FDA-Public Use
  Company Number: US-BAYER-2019-054688

PATIENT
  Age: 70 Year
  Sex: Male

DRUGS (2)
  1. MIRALAX [Suspect]
     Active Substance: POLYETHYLENE GLYCOL 3350
     Dosage: UNK
  2. PSYLLIUM HYDROPHILIC MUCILLOID [Concomitant]
     Active Substance: PSYLLIUM HUSK
     Dosage: UNK

REACTIONS (1)
  - Product use issue [Unknown]
